FAERS Safety Report 25283097 (Version 1)
Quarter: 2025Q2

REPORT INFORMATION
  Report Type: Spontaneous
  Country: FR (occurrence: FR)
  Receive Date: 20250508
  Receipt Date: 20250508
  Transmission Date: 20250716
  Serious: Yes (Other)
  Sender: VERITY PHARMACEUTICALS INC.
  Company Number: FR-VER-202500021

PATIENT
  Age: 45 Year
  Sex: Female
  Weight: 64 kg

DRUGS (2)
  1. TRIPTORELIN PAMOATE [Suspect]
     Active Substance: TRIPTORELIN PAMOATE
     Indication: Uterine leiomyoma
     Dosage: POWDER FOR PROLONGED-RELEASE SUSPENSION FOR INJECT; ?1 DOSAGE FORM, IN 1 TOTAL; 3 MONTHS
     Route: 030
     Dates: start: 20250331, end: 20250331
  2. TRIPTORELIN PAMOATE [Suspect]
     Active Substance: TRIPTORELIN PAMOATE
     Indication: Off label use
     Dosage: POWDER FOR PROLONGED-RELEASE SUSPENSION FOR INJECT; ?1 DOSAGE FORM, IN 1 TOTAL; 3 MONTHS
     Route: 030
     Dates: start: 20250331, end: 20250331

REACTIONS (2)
  - Off label use [Unknown]
  - Vaginal haemorrhage [Not Recovered/Not Resolved]

NARRATIVE: CASE EVENT DATE: 20250331
